FAERS Safety Report 4479521-1 (Version None)
Quarter: 2004Q4

REPORT INFORMATION
  Report Type: 
  Country: None (occurrence: None)
  Receive Date: 20041015
  Receipt Date: 20040930
  Transmission Date: 20050328
  Serious: Yes (Other)
  Sender: FDA-Public Use
  Company Number: 2004S1000183

PATIENT
  Age: 40 Year
  Sex: Male

DRUGS (1)
  1. ACITRETIN (ACITRETIN) (25 MG) [Suspect]
     Indication: PSORIASIS
     Dosage: 25 MG; QD; ORAL
     Route: 048

REACTIONS (2)
  - BLOOD PRESSURE DIASTOLIC INCREASED [None]
  - HYPERTENSION [None]
